FAERS Safety Report 6425961-0 (Version None)
Quarter: 2009Q4

REPORT INFORMATION
  Report Type: 
  Country: None (occurrence: None)
  Receive Date: 20091103
  Receipt Date: 20091103
  Transmission Date: 20100525
  Serious: No
  Sender: FDA-Public Use
  Company Number: None

PATIENT

DRUGS (2)
  1. SIMVASTATIN [Suspect]
     Indication: RHABDOMYOLYSIS
     Dosage: 40 MG EVERY DAY PO
     Route: 048
     Dates: start: 20070307, end: 20081106
  2. GEMFIBROZIL [Suspect]
     Dosage: 600 MG EVERY DAY PO
     Route: 048
     Dates: start: 20051206, end: 20081106

REACTIONS (4)
  - HEPATIC ENZYME INCREASED [None]
  - RENAL FAILURE ACUTE [None]
  - RENAL TUBULAR NECROSIS [None]
  - RHABDOMYOLYSIS [None]
